FAERS Safety Report 8257397-4 (Version None)
Quarter: 2012Q1

REPORT INFORMATION
  Report Type: 
  Country: None (occurrence: None)
  Receive Date: 20120330
  Receipt Date: 20120330
  Transmission Date: 20120608
  Serious: Yes (Life-Threatening)
  Sender: FDA-Public Use
  Company Number: None

PATIENT
  Age: 62 Year
  Sex: Female
  Weight: 58.9676 kg

DRUGS (4)
  1. FLEXERIL [Concomitant]
  2. LORITAB [Concomitant]
  3. XANAX [Concomitant]
  4. TEMAZEPAM [Suspect]
     Indication: INSOMNIA
     Dosage: 1 CAP BY MOUTH EVERY DAY
     Route: 048
     Dates: start: 20120120

REACTIONS (7)
  - IMPRISONMENT [None]
  - LEGAL PROBLEM [None]
  - AMNESIA [None]
  - CRYING [None]
  - CONFUSIONAL STATE [None]
  - ROAD TRAFFIC ACCIDENT [None]
  - FEELING ABNORMAL [None]
